FAERS Safety Report 25885985 (Version 1)
Quarter: 2025Q4

REPORT INFORMATION
  Report Type: Spontaneous
  Country: US (occurrence: None)
  Receive Date: 20251003
  Receipt Date: 20251003
  Transmission Date: 20260118
  Serious: No
  Sender: FDA-CTU
  Company Number: None

PATIENT

DRUGS (3)
  1. SOLU-MEDROL [Suspect]
     Active Substance: METHYLPREDNISOLONE SODIUM SUCCINATE
  2. BACLOFEN [Suspect]
     Active Substance: BACLOFEN
  3. MECLIZINE [Suspect]
     Active Substance: MECLIZINE HYDROCHLORIDE

REACTIONS (2)
  - Drug hypersensitivity [None]
  - Central nervous system lesion [None]

NARRATIVE: CASE EVENT DATE: 20251002
